FAERS Safety Report 12951356 (Version 1)
Quarter: 2016Q4

REPORT INFORMATION
  Report Type: Spontaneous
  Country: US (occurrence: US)
  Receive Date: 20161117
  Receipt Date: 20161117
  Transmission Date: 20170207
  Serious: No
  Sender: FDA-Public Use
  Company Number: US-ASTRAZENECA-2016SF17569

PATIENT
  Age: 69 Year
  Sex: Female

DRUGS (14)
  1. NEXIUM [Suspect]
     Active Substance: ESOMEPRAZOLE MAGNESIUM
     Route: 048
  2. PRISTIQ EXTENDED-RELEASE [Suspect]
     Active Substance: DESVENLAFAXINE SUCCINATE
     Route: 065
  3. HCTZ [Suspect]
     Active Substance: HYDROCHLOROTHIAZIDE
     Route: 065
  4. ZETIA [Suspect]
     Active Substance: EZETIMIBE
     Route: 065
  5. SYNTHROID [Suspect]
     Active Substance: LEVOTHYROXINE SODIUM
     Route: 065
  6. ASPIRIN. [Suspect]
     Active Substance: ASPIRIN
     Route: 065
  7. LIPITOR [Suspect]
     Active Substance: ATORVASTATIN CALCIUM
     Route: 065
  8. COQ 10 [Suspect]
     Active Substance: UBIDECARENONE
     Route: 065
  9. B 50 [Suspect]
     Active Substance: BIOTIN\VITAMIN B COMPLEX
     Route: 065
  10. ISOSORBIDE. [Suspect]
     Active Substance: ISOSORBIDE
     Route: 048
  11. PLAVIX [Suspect]
     Active Substance: CLOPIDOGREL BISULFATE
     Route: 065
  12. VESICARE [Suspect]
     Active Substance: SOLIFENACIN SUCCINATE
     Route: 065
  13. BYSTOLIC [Suspect]
     Active Substance: NEBIVOLOL HYDROCHLORIDE
     Route: 065
  14. FISH OIL [Suspect]
     Active Substance: FISH OIL
     Route: 065

REACTIONS (1)
  - Drug hypersensitivity [Unknown]
